FAERS Safety Report 20945100 (Version 1)
Quarter: 2022Q2

REPORT INFORMATION
  Report Type: Other
  Country: GB (occurrence: GB)
  Receive Date: 20220610
  Receipt Date: 20220610
  Transmission Date: 20220721
  Serious: Yes (Disabling, Other)
  Sender: FDA-Public Use
  Company Number: GB-MHRA-MED-202206082145414940-CHFRN

PATIENT
  Age: 51 Year
  Sex: Female

DRUGS (1)
  1. SOLIFENACIN [Suspect]
     Active Substance: SOLIFENACIN
     Indication: Hypertonic bladder
     Dosage: 5 MG, ONCE DAILY (IN THE MORNING)
     Route: 065
     Dates: end: 20220601

REACTIONS (3)
  - Oropharyngeal pain [Recovering/Resolving]
  - Throat clearing [Recovering/Resolving]
  - Dysphonia [Recovering/Resolving]

NARRATIVE: CASE EVENT DATE: 20220206
